FAERS Safety Report 8125217-4 (Version None)
Quarter: 2012Q1

REPORT INFORMATION
  Report Type: 
  Country: None (occurrence: None)
  Receive Date: 20120209
  Receipt Date: 20120202
  Transmission Date: 20120608
  Serious: Yes (Other)
  Sender: FDA-Public Use
  Company Number: FR-PFIZER INC-2012004382

PATIENT
  Age: 70 Year
  Sex: Male
  Weight: 70 kg

DRUGS (6)
  1. CYTARABINE [Suspect]
     Route: 042
  2. GEMTUZUMAB OZOGAMICIN [Suspect]
     Route: 042
  3. CYTARABINE [Suspect]
     Indication: ACUTE MYELOID LEUKAEMIA
     Dosage: 370 MG, 1X/DAY
     Route: 042
     Dates: start: 20100203, end: 20100209
  4. DAUNORUBICIN HYDROCHLORIDE [Suspect]
     Indication: ACUTE MYELOID LEUKAEMIA
     Dosage: 115 MG, 1X/DAY
     Route: 042
     Dates: start: 20100203, end: 20100205
  5. DAUNORUBICIN HYDROCHLORIDE [Suspect]
     Route: 042
  6. GEMTUZUMAB OZOGAMICIN [Suspect]
     Indication: ACUTE MYELOID LEUKAEMIA
     Dosage: 5 MG, CYCLIC
     Route: 041
     Dates: start: 20100203, end: 20100209

REACTIONS (1)
  - THROMBOCYTOPENIA [None]
